FAERS Safety Report 22613169 (Version 1)
Quarter: 2023Q2

REPORT INFORMATION
  Report Type: Spontaneous
  Country: US (occurrence: US)
  Receive Date: 20230618
  Receipt Date: 20230618
  Transmission Date: 20230722
  Serious: No
  Sender: FDA-Public Use
  Company Number: US-BAUSCHBL-2023BNL005036

PATIENT
  Age: 77 Year
  Sex: Female

DRUGS (2)
  1. LOTEMAX SM [Suspect]
     Active Substance: LOTEPREDNOL ETABONATE
     Indication: Postoperative care
     Route: 065
     Dates: start: 2012
  2. ESTRADIOL [Concomitant]
     Active Substance: ESTRADIOL
     Indication: Product used for unknown indication
     Route: 065

REACTIONS (4)
  - Vision blurred [Recovered/Resolved]
  - Product quality issue [Unknown]
  - Product dose omission issue [Unknown]
  - Product packaging quantity issue [Unknown]

NARRATIVE: CASE EVENT DATE: 20230608
